FAERS Safety Report 20576508 (Version 3)
Quarter: 2022Q2

REPORT INFORMATION
  Report Type: Other
  Country: FI (occurrence: FI)
  Receive Date: 20220310
  Receipt Date: 20220404
  Transmission Date: 20220721
  Serious: Yes (Other)
  Sender: FDA-Public Use
  Company Number: FI-CELLTRION INC.-2022FI002570

PATIENT

DRUGS (2)
  1. ADALIMUMAB [Suspect]
     Active Substance: ADALIMUMAB
     Indication: Product used for unknown indication
     Route: 058
  2. RITUXIMAB [Suspect]
     Active Substance: RITUXIMAB
     Indication: Product used for unknown indication
     Route: 065

REACTIONS (10)
  - Hip arthroplasty [Unknown]
  - Synovitis [Unknown]
  - Rheumatic disorder [Unknown]
  - Rheumatoid arthritis [Unknown]
  - Joint effusion [Unknown]
  - C-reactive protein abnormal [Unknown]
  - Tenosynovitis [Unknown]
  - Staphylococcal infection [Recovered/Resolved with Sequelae]
  - Purulence [Recovered/Resolved with Sequelae]
  - Post procedural infection [Unknown]

NARRATIVE: CASE EVENT DATE: 20120101
